FAERS Safety Report 23450065 (Version 1)
Quarter: 2024Q1

REPORT INFORMATION
  Report Type: Spontaneous
  Country: JP (occurrence: JP)
  Receive Date: 20240129
  Receipt Date: 20240129
  Transmission Date: 20240409
  Serious: Yes (Other)
  Sender: FDA-Public Use
  Company Number: JP-NBI-BJ202401646

PATIENT

DRUGS (1)
  1. JARDIANCE [Suspect]
     Active Substance: EMPAGLIFLOZIN
     Indication: Cardiac failure chronic
     Route: 065

REACTIONS (5)
  - Cardiac failure [Unknown]
  - Hypotension [Unknown]
  - Hypertension [Unknown]
  - Urinary tract infection [Unknown]
  - Fall [Unknown]
